FAERS Safety Report 5293934-X (Version None)
Quarter: 2007Q2

REPORT INFORMATION
  Report Type: 
  Country: None (occurrence: None)
  Receive Date: 20070405
  Receipt Date: 20070327
  Transmission Date: 20071010
  Serious: Yes (Other)
  Sender: FDA-Public Use
  Company Number: 2007PV030427

PATIENT
  Age: 69 Year
  Sex: Female
  Weight: 86.1834 kg

DRUGS (6)
  1. BYETTA [Suspect]
     Indication: DIABETES MELLITUS NON-INSULIN-DEPENDENT
     Dosage: SEE IMAGE
     Route: 058
     Dates: start: 20060731, end: 20061220
  2. BYETTA [Suspect]
     Indication: DIABETES MELLITUS NON-INSULIN-DEPENDENT
     Dosage: SEE IMAGE
     Route: 058
     Dates: start: 20061220
  3. GLYBURIDE [Concomitant]
  4. DIOVAN HCT [Concomitant]
  5. LUMIGAN OPTHALMIC [Concomitant]
  6. SOLUTION [Concomitant]

REACTIONS (3)
  - BREAST CANCER FEMALE [None]
  - DYSPEPSIA [None]
  - NAUSEA [None]
